FAERS Safety Report 5727971-5 (Version None)
Quarter: 2008Q2

REPORT INFORMATION
  Report Type: 
  Country: None (occurrence: None)
  Receive Date: 20080505
  Receipt Date: 20080505
  Transmission Date: 20081010
  Serious: Yes (Hospitalization)
  Sender: FDA-Public Use
  Company Number: GR-BOEHRINGER INGELHEIM GMBH, GERMANY-2008-DE-02624GD

PATIENT
  Sex: Female

DRUGS (12)
  1. NAPROXEN [Suspect]
     Indication: OSTEOARTHRITIS
  2. NAPROXEN [Suspect]
     Indication: BACK PAIN
  3. PIROXICAM [Suspect]
     Indication: OSTEOARTHRITIS
  4. PIROXICAM [Suspect]
     Indication: BACK PAIN
  5. SULINDAC [Suspect]
     Indication: OSTEOARTHRITIS
  6. SULINDAC [Suspect]
     Indication: BACK PAIN
  7. DICLOFENAC SODIUM [Suspect]
     Indication: OSTEOARTHRITIS
  8. DICLOFENAC SODIUM [Suspect]
     Indication: BACK PAIN
  9. INDOMETHACIN [Suspect]
     Indication: OSTEOARTHRITIS
  10. INDOMETHACIN [Suspect]
     Indication: BACK PAIN
  11. NIMESULIDE [Suspect]
     Indication: OSTEOARTHRITIS
  12. NIMESULIDE [Suspect]
     Indication: BACK PAIN

REACTIONS (4)
  - ABDOMINAL PAIN [None]
  - COLONIC STENOSIS [None]
  - CONSTIPATION [None]
  - INCORRECT DRUG ADMINISTRATION RATE [None]
